FAERS Safety Report 20156415 (Version 3)
Quarter: 2022Q1

REPORT INFORMATION
  Report Type: Report from Study
  Country: DE (occurrence: None)
  Receive Date: 20211207
  Receipt Date: 20220219
  Transmission Date: 20220423
  Serious: Yes (Hospitalization)
  Sender: FDA-Public Use
  Company Number: DE-ROCHE-2969592

PATIENT
  Age: 34 Year
  Sex: Female
  Weight: 68.5 kg

DRUGS (17)
  1. ATEZOLIZUMAB [Suspect]
     Active Substance: ATEZOLIZUMAB
     Indication: Triple negative breast cancer
     Dosage: DATE OF LAST DOSE PRIOR TO SAE: 04/NOV/2021
     Route: 041
     Dates: start: 20210728
  2. PACLITAXEL [Suspect]
     Active Substance: PACLITAXEL
     Indication: Triple negative breast cancer
     Dosage: DATE OF LAST DOSE PRIOR TO SAE: 28/OCT/2021 148 MG
     Route: 042
     Dates: start: 20210811
  3. CARBOPLATIN [Suspect]
     Active Substance: CARBOPLATIN
     Indication: Triple negative breast cancer
     Dosage: AREA UNDER THE CURVE OF 2 INTRAVENOUS?DATE OF LAST DOSE PRIOR TO SAE: 28/OCT/2021 286 MG
     Route: 042
     Dates: start: 20210811
  4. EPIRUBICIN [Suspect]
     Active Substance: EPIRUBICIN
     Indication: Triple negative breast cancer
     Dosage: DATE OF LAST DOSE PRIOR TO SAE 04/NOV/2021: 167 MG
     Route: 042
     Dates: start: 20211104
  5. CYCLOPHOSPHAMIDE [Suspect]
     Active Substance: CYCLOPHOSPHAMIDE
     Indication: Triple negative breast cancer
     Dosage: DATE OF LAST DOSE PRIOR TO SAE 04/NOV/2021:  1110 MG
     Route: 042
     Dates: start: 20211104
  6. DEXAMETHASONE [Concomitant]
     Active Substance: DEXAMETHASONE
     Dates: start: 20210811
  7. DIMETHINDENE MALEATE [Concomitant]
     Active Substance: DIMETHINDENE MALEATE
     Dates: start: 20210811, end: 20211028
  8. PEGFILGRASTIM [Concomitant]
     Active Substance: PEGFILGRASTIM
     Dates: start: 20211006
  9. ZOLADEX [Concomitant]
     Active Substance: GOSERELIN ACETATE
     Dates: start: 20210818
  10. MESNA [Concomitant]
     Active Substance: MESNA
     Dates: start: 20211104
  11. AKYNZEO [Concomitant]
     Active Substance: NETUPITANT\PALONOSETRON HYDROCHLORIDE
     Dosage: 300/0.5 MG
     Dates: start: 20211104
  12. PIPERACILLIN [Concomitant]
     Active Substance: PIPERACILLIN
     Dates: start: 20211111, end: 20211117
  13. FLUOXETINE HYDROCHLORIDE [Concomitant]
     Active Substance: FLUOXETINE HYDROCHLORIDE
  14. OMEPRAZOLE [Concomitant]
     Active Substance: OMEPRAZOLE
  15. FOLIC ACID [Concomitant]
     Active Substance: FOLIC ACID
     Dates: start: 20211111
  16. MEROPENEM [Concomitant]
     Active Substance: MEROPENEM
     Dates: start: 202111, end: 20211117
  17. BUDESONIDE [Concomitant]
     Active Substance: BUDESONIDE
     Dates: start: 202111

REACTIONS (1)
  - Anaemia [Recovered/Resolved]

NARRATIVE: CASE EVENT DATE: 20211109
